FAERS Safety Report 4592815-4 (Version None)
Quarter: 2005Q1

REPORT INFORMATION
  Report Type: 
  Country: None (occurrence: None)
  Receive Date: 20050228
  Receipt Date: 20050223
  Transmission Date: 20050727
  Serious: Yes (Death)
  Sender: FDA-Public Use
  Company Number: GB-BRISTOL-MYERS SQUIBB COMPANY-12874954

PATIENT
  Sex: Female

DRUGS (4)
  1. ARIPIPRAZOLE [Suspect]
     Route: 048
  2. ANTIHYPERTENSIVE [Interacting]
  3. ALCOHOL [Interacting]
  4. ATENOLOL [Concomitant]

REACTIONS (2)
  - DEATH [None]
  - DRUG INTERACTION [None]
